FAERS Safety Report 13997904 (Version 1)
Quarter: 2017Q3

REPORT INFORMATION
  Report Type: Spontaneous
  Country: ES (occurrence: ES)
  Receive Date: 20170921
  Receipt Date: 20170921
  Transmission Date: 20171128
  Serious: Yes (Hospitalization, Other)
  Sender: FDA-Public Use
  Company Number: ES-PFIZER INC-2017405909

PATIENT
  Age: 94 Year
  Sex: Female

DRUGS (3)
  1. LYRICA [Suspect]
     Active Substance: PREGABALIN
     Dosage: 300 MG/SINGLE
     Route: 048
     Dates: start: 20170830, end: 20170830
  2. DEPRAX /00447702/ [Interacting]
     Active Substance: TRAZODONE HYDROCHLORIDE
     Dosage: 100 MG/ SINGLE
     Route: 048
     Dates: start: 20170830, end: 20170830
  3. DORMICUM /00036201/ [Interacting]
     Active Substance: NITRAZEPAM
     Dosage: HALF TABLET/SINGLE
     Route: 048
     Dates: start: 20170830, end: 20170830

REACTIONS (8)
  - Vomiting [Recovered/Resolved]
  - Somnolence [Recovered/Resolved]
  - Drug dispensed to wrong patient [Unknown]
  - Drug interaction [Recovered/Resolved]
  - Apnoea [Recovered/Resolved]
  - Aspiration bronchial [Unknown]
  - Depressed level of consciousness [Recovered/Resolved]
  - Hypotension [Recovered/Resolved]

NARRATIVE: CASE EVENT DATE: 20170830
